FAERS Safety Report 13472514 (Version 1)
Quarter: 2017Q2

REPORT INFORMATION
  Report Type: Spontaneous
  Country: US (occurrence: US)
  Receive Date: 20170423
  Receipt Date: 20170423
  Transmission Date: 20170830
  Serious: Yes (Life-Threatening, Hospitalization)
  Sender: FDA-Public Use
  Company Number: None

PATIENT
  Age: 73 Year
  Sex: Female
  Weight: 49.5 kg

DRUGS (7)
  1. LORATIDINE [Concomitant]
     Active Substance: LORATADINE
  2. VITAMIN D3 [Concomitant]
     Active Substance: CHOLECALCIFEROL
  3. NAPROXEN. [Suspect]
     Active Substance: NAPROXEN
     Indication: ARTHRALGIA
     Route: 048
     Dates: start: 20170410, end: 20170410
  4. AMLODIPINE [Concomitant]
     Active Substance: AMLODIPINE BESYLATE
  5. LOPERAMIDE [Concomitant]
     Active Substance: LOPERAMIDE
  6. HYDROCHLOROTHIAZIDE. [Concomitant]
     Active Substance: HYDROCHLOROTHIAZIDE
  7. FLUOXETINE [Concomitant]
     Active Substance: FLUOXETINE HYDROCHLORIDE

REACTIONS (7)
  - Feeling hot [None]
  - Syncope [None]
  - Blood pressure decreased [None]
  - Flushing [None]
  - Pruritus [None]
  - Loss of consciousness [None]
  - Hypersensitivity [None]

NARRATIVE: CASE EVENT DATE: 20170410
